FAERS Safety Report 18875310 (Version 3)
Quarter: 2021Q2

REPORT INFORMATION
  Report Type: Report from Study
  Country: US (occurrence: US)
  Receive Date: 20210211
  Receipt Date: 20210421
  Transmission Date: 20210717
  Serious: Yes (Hospitalization)
  Sender: FDA-Public Use
  Company Number: US-TAKEDA-2021TUS008102

PATIENT
  Sex: Male

DRUGS (3)
  1. PONATINIB [Suspect]
     Active Substance: PONATINIB
     Dosage: 30 MILLIGRAM, QD
     Route: 048
  2. PONATINIB [Suspect]
     Active Substance: PONATINIB
     Indication: ACUTE LYMPHOCYTIC LEUKAEMIA
     Dosage: 45 MILLIGRAM, QD
     Route: 048
  3. SPRYCEL [Suspect]
     Active Substance: DASATINIB
     Indication: PRODUCT USED FOR UNKNOWN INDICATION
     Dosage: UNK
     Route: 065

REACTIONS (10)
  - Hypoaesthesia [Unknown]
  - Paraesthesia [Unknown]
  - Headache [Unknown]
  - Arthralgia [Unknown]
  - Adverse reaction [Unknown]
  - COVID-19 [Unknown]
  - Pain in extremity [Unknown]
  - Eye pain [Unknown]
  - Visual impairment [Unknown]
  - Muscular weakness [Unknown]
